FAERS Safety Report 16259762 (Version 1)
Quarter: 2019Q2

REPORT INFORMATION
  Report Type: Spontaneous
  Country: CA (occurrence: CA)
  Receive Date: 20190501
  Receipt Date: 20190501
  Transmission Date: 20190711
  Serious: Yes (Other)
  Sender: FDA-Public Use
  Company Number: CA-USPHARMA LIMITED-2019-CA-000022

PATIENT
  Sex: Male

DRUGS (3)
  1. ACID ACETYLSALICYLIC [Suspect]
     Active Substance: ASPIRIN
     Indication: CHEST PAIN
     Route: 065
  2. NITROGLYCERIN. [Suspect]
     Active Substance: NITROGLYCERIN
     Indication: CHEST PAIN
     Route: 065
  3. MORPHINE [Suspect]
     Active Substance: MORPHINE
     Indication: CHEST PAIN
     Route: 065

REACTIONS (6)
  - Hyperhidrosis [Unknown]
  - Loss of consciousness [Unknown]
  - Bradycardia [Unknown]
  - Pallor [Unknown]
  - Feeling abnormal [Unknown]
  - Seizure [Unknown]
